FAERS Safety Report 8177932-4 (Version None)
Quarter: 2012Q1

REPORT INFORMATION
  Report Type: 
  Country: None (occurrence: None)
  Receive Date: 20120301
  Receipt Date: 20120222
  Transmission Date: 20120608
  Serious: Yes (Other)
  Sender: FDA-Public Use
  Company Number: JP-VERTEX PHARMACEUTICALS INC.-AE-2012-002821

PATIENT
  Age: 56 Year
  Sex: Female

DRUGS (7)
  1. CLARITIN [Concomitant]
     Route: 048
  2. TELAVIC (TELAPREVIR) [Suspect]
     Indication: HEPATITIS C
     Route: 048
     Dates: start: 20120110
  3. NEUROTROPIN [Concomitant]
     Route: 048
  4. PEGINTERFERON ALFA-2B [Concomitant]
     Indication: HEPATITIS C
     Route: 051
     Dates: start: 20120110
  5. REBETOL [Concomitant]
     Indication: HEPATITIS C
     Route: 048
     Dates: start: 20120110, end: 20120123
  6. REBETOL [Concomitant]
     Route: 048
     Dates: start: 20120124
  7. PAROTIN [Concomitant]
     Route: 048

REACTIONS (4)
  - INSOMNIA [None]
  - HAEMOGLOBIN DECREASED [None]
  - DEPRESSION [None]
  - NEUTROPHIL COUNT DECREASED [None]
